FAERS Safety Report 14818343 (Version 7)
Quarter: 2019Q2

REPORT INFORMATION
  Report Type: Report from Study
  Country: US (occurrence: US)
  Receive Date: 20180427
  Receipt Date: 20190625
  Transmission Date: 20190711
  Serious: Yes (Other)
  Sender: FDA-Public Use
  Company Number: PHHY2018US069643

PATIENT
  Age: 30 Year
  Sex: Female

DRUGS (2)
  1. GILENYA [Suspect]
     Active Substance: FINGOLIMOD HYDROCHLORIDE
     Indication: MULTIPLE SCLEROSIS
     Dosage: UNK UNK, QD
     Route: 048
  2. MODAFINIL. [Concomitant]
     Active Substance: MODAFINIL
     Indication: FATIGUE
     Dosage: UNK
     Route: 065
     Dates: start: 20180629

REACTIONS (13)
  - Pseudofolliculitis [Unknown]
  - Hypoaesthesia [Not Recovered/Not Resolved]
  - Aspartate aminotransferase increased [Unknown]
  - Lymphocyte count decreased [Unknown]
  - Paraesthesia [Not Recovered/Not Resolved]
  - Pain in extremity [Unknown]
  - White blood cell count decreased [Unknown]
  - Central nervous system lesion [Unknown]
  - Atrioventricular block first degree [Recovered/Resolved]
  - Depression [Unknown]
  - Alanine aminotransferase increased [Unknown]
  - Acne [Unknown]
  - Neck pain [Unknown]

NARRATIVE: CASE EVENT DATE: 20180124
